FAERS Safety Report 5598743-X (Version None)
Quarter: 2008Q1

REPORT INFORMATION
  Report Type: 
  Country: None (occurrence: None)
  Receive Date: 20080117
  Receipt Date: 20071220
  Transmission Date: 20080703
  Serious: Yes (Death)
  Sender: FDA-Public Use
  Company Number: CLOF-1000041

PATIENT
  Age: 8 Year
  Sex: Female
  Weight: 27 kg

DRUGS (7)
  1. CLOLAR (CLOFARABINE) SOLUTION FOR INFUSION, 20MG/M2 [Suspect]
     Indication: ACUTE LYMPHOCYTIC LEUKAEMIA
     Dosage: 20 MG/M2, QDX5, INTRAVENOUS
     Route: 042
  2. CYCLOPHOSPHAMIDE [Suspect]
     Indication: ACUTE LYMPHOCYTIC LEUKAEMIA
     Dosage: 440 MG/M2, QDX5, INTRAVENOUS
     Route: 042
  3. ETOPOSIDE [Suspect]
     Indication: ACUTE LYMPHOCYTIC LEUKAEMIA
     Dosage: 75 MG/M2, QDX2, INTRAVENOUS
     Route: 042
  4. TEICOPLANIN (TEICOPLANIN) [Concomitant]
  5. MEROPENEM (MEROPENEM) [Concomitant]
  6. POLYMYXIN B SULFATE [Concomitant]
  7. FLUCONAZOLE [Concomitant]

REACTIONS (2)
  - NO THERAPEUTIC RESPONSE [None]
  - THERAPEUTIC RESPONSE DECREASED [None]
